FAERS Safety Report 6410780-1 (Version None)
Quarter: 2009Q4

REPORT INFORMATION
  Report Type: 
  Country: None (occurrence: None)
  Receive Date: 20091016
  Receipt Date: 20091008
  Transmission Date: 20100525
  Serious: Yes (Other)
  Sender: FDA-Public Use
  Company Number: 2009SP029613

PATIENT
  Age: 30 Year
  Sex: Female
  Weight: 81.6475 kg

DRUGS (2)
  1. NUVARING [Suspect]
     Indication: CONTRACEPTION
     Dates: start: 20060101, end: 20090301
  2. NUVARING [Suspect]
     Indication: CONTRACEPTION
     Dates: start: 20090401, end: 20090501

REACTIONS (5)
  - DEPRESSION [None]
  - IRRITABILITY [None]
  - LOSS OF EMPLOYMENT [None]
  - STRESS [None]
  - SUICIDAL IDEATION [None]
